FAERS Safety Report 9626780 (Version 2)
Quarter: 2013Q4

REPORT INFORMATION
  Report Type: Spontaneous
  Country: FR (occurrence: FR)
  Receive Date: 20131016
  Receipt Date: 20131023
  Transmission Date: 20140711
  Serious: Yes (Hospitalization)
  Sender: FDA-Public Use
  Company Number: FR-GLAXOSMITHKLINE-B0929587A

PATIENT
  Age: 75 Year
  Sex: Female

DRUGS (5)
  1. DEROXAT [Suspect]
     Indication: PRODUCT USED FOR UNKNOWN INDICATION
     Dosage: 10MG PER DAY
     Route: 048
     Dates: start: 201209
  2. COUMADINE [Suspect]
     Indication: PRODUCT USED FOR UNKNOWN INDICATION
     Route: 048
     Dates: end: 201304
  3. CRESTOR [Concomitant]
     Dosage: 10MG PER DAY
     Route: 048
  4. RENAGEL [Concomitant]
     Dosage: 2400MG TWICE PER DAY
     Route: 048
  5. INSULIN [Concomitant]
     Route: 058

REACTIONS (4)
  - Subarachnoid haemorrhage [Recovered/Resolved]
  - Cerebral haematoma [Recovered/Resolved]
  - Fall [Unknown]
  - Skull fractured base [Unknown]
